FAERS Safety Report 9532426 (Version 1)
Quarter: 2013Q2

REPORT INFORMATION
  Report Type: Spontaneous
  Country: US (occurrence: None)
  Receive Date: 20130403
  Receipt Date: 20130403
  Transmission Date: 20140414
  Serious: Yes (Other)
  Sender: FDA-Public Use
  Company Number: 011691

PATIENT
  Age: 53 Year
  Sex: Female

DRUGS (5)
  1. BUSULFEX [Suspect]
     Dosage: 10 MG/KG, UNKNOWN, UNKNOWN
  2. FLUDARABINE (FLUDARABINE) [Concomitant]
  3. ANTITHYMOCYTE IMMUNOGLOBULIN (ANTITHYMOCYTE IMMUNOGLOBULIN) [Concomitant]
  4. CYCLOSPORINE (CICLOSPORIN) [Concomitant]
  5. METHOTREXATE (METHOTREXATE) [Concomitant]

REACTIONS (1)
  - Acute graft versus host disease [None]
